FAERS Safety Report 24301340 (Version 1)
Quarter: 2024Q3

REPORT INFORMATION
  Report Type: Report from Study
  Country: BR (occurrence: BR)
  Receive Date: 20240910
  Receipt Date: 20240910
  Transmission Date: 20241016
  Serious: Yes (Other)
  Sender: JOHNSON AND JOHNSON
  Company Number: BR-JNJFOC-20240911360

PATIENT
  Age: 60 Year
  Sex: Female
  Weight: 70 kg

DRUGS (2)
  1. GOLIMUMAB [Suspect]
     Active Substance: GOLIMUMAB
     Indication: Rheumatoid arthritis
     Route: 058
     Dates: start: 20240718
  2. GOLIMUMAB [Suspect]
     Active Substance: GOLIMUMAB

REACTIONS (3)
  - Rheumatoid arthritis [Unknown]
  - Illness [Recovered/Resolved]
  - Furuncle [Recovered/Resolved]

NARRATIVE: CASE EVENT DATE: 20240101
